FAERS Safety Report 10301548 (Version 2)
Quarter: 2014Q3

REPORT INFORMATION
  Report Type: Spontaneous
  Country: US (occurrence: US)
  Receive Date: 20140714
  Receipt Date: 20140714
  Transmission Date: 20150326
  Serious: Yes (Other)
  Sender: FDA-Public Use
  Company Number: US-BANPHARM-20142842

PATIENT
  Age: 68 Year
  Sex: Male

DRUGS (1)
  1. VALPROIC ACID CAPSULES 250 MG [Suspect]
     Active Substance: VALPROIC ACID
     Route: 048
     Dates: start: 2008, end: 201311

REACTIONS (2)
  - Pneumonia [Recovering/Resolving]
  - Parkinson^s disease [Recovering/Resolving]
